FAERS Safety Report 24250393 (Version 1)
Quarter: 2024Q3

REPORT INFORMATION
  Report Type: Spontaneous
  Country: FR (occurrence: FR)
  Receive Date: 20240826
  Receipt Date: 20240826
  Transmission Date: 20241016
  Serious: Yes (Other)
  Sender: KARYOPHARM THERAPEUTICS
  Company Number: FR-KARYOPHARM-2024KPT001457

PATIENT

DRUGS (2)
  1. SELINEXOR [Suspect]
     Active Substance: SELINEXOR
     Indication: Plasma cell myeloma
     Dosage: UNK
  2. IDECABTAGENE VICLEUCEL [Concomitant]
     Active Substance: IDECABTAGENE VICLEUCEL
     Indication: Plasma cell myeloma
     Dosage: UNK

REACTIONS (1)
  - Cytokine release syndrome [Unknown]
